FAERS Safety Report 5904212-7 (Version None)
Quarter: 2008Q3

REPORT INFORMATION
  Report Type: 
  Country: None (occurrence: None)
  Receive Date: 20080930
  Receipt Date: 20080930
  Transmission Date: 20090109
  Serious: Yes (Other)
  Sender: FDA-Public Use
  Company Number: None

PATIENT
  Sex: Female
  Weight: 76.2043 kg

DRUGS (3)
  1. RECLAST [Suspect]
     Indication: OSTEOPOROSIS
     Dosage: 5MG Q YEAR IV (042)
     Route: 042
     Dates: start: 20080821
  2. CALCIUM [Concomitant]
  3. HYDROCHLOROTHIAZIDE [Concomitant]

REACTIONS (7)
  - BACK PAIN [None]
  - INFUSION SITE PAIN [None]
  - MUSCULOSKELETAL PAIN [None]
  - PAIN IN EXTREMITY [None]
  - RASH [None]
  - SCAB [None]
  - SCAR [None]
